FAERS Safety Report 22522609 (Version 2)
Quarter: 2023Q2

REPORT INFORMATION
  Report Type: Spontaneous
  Country: US (occurrence: US)
  Receive Date: 20230605
  Receipt Date: 20230606
  Transmission Date: 20230721
  Serious: No
  Sender: FDA-Public Use
  Company Number: US-002147023-NVSC2023US125640

PATIENT
  Sex: Male

DRUGS (1)
  1. KETOCONAZOLE [Suspect]
     Active Substance: KETOCONAZOLE
     Indication: Fungal infection
     Dosage: 2 %, BID (MORNING AND AFTERNOON)
     Route: 061

REACTIONS (4)
  - Skin exfoliation [Recovering/Resolving]
  - Sunburn [Unknown]
  - Application site pain [Unknown]
  - Application site irritation [Unknown]
